FAERS Safety Report 4380906-2 (Version None)
Quarter: 2004Q2

REPORT INFORMATION
  Report Type: 
  Country: None (occurrence: None)
  Receive Date: 20040616
  Receipt Date: 20040603
  Transmission Date: 20050107
  Serious: Yes (Other)
  Sender: FDA-Public Use
  Company Number: 2004029635

PATIENT
  Age: 63 Year
  Sex: Female
  Weight: 65 kg

DRUGS (4)
  1. LIPITOR [Suspect]
     Indication: HYPERCHOLESTEROLAEMIA
     Dosage: 20 MG (20 MG, 1 IN 1 D), ORAL
     Route: 048
     Dates: start: 20030301, end: 20040401
  2. ANASTROZOLE [Concomitant]
  3. IMIPRAMINE HCL [Concomitant]
  4. PROPANTHELINE BROMIDE [Concomitant]

REACTIONS (4)
  - LYMPHADENECTOMY [None]
  - MUSCLE HAEMORRHAGE [None]
  - POST PROCEDURAL COMPLICATION [None]
  - ROTATOR CUFF SYNDROME [None]
